FAERS Safety Report 5033320-0 (Version None)
Quarter: 2006Q2

REPORT INFORMATION
  Report Type: 
  Country: None (occurrence: None)
  Receive Date: 20060515
  Receipt Date: 20060221
  Transmission Date: 20061013
  Serious: No
  Sender: FDA-Public Use
  Company Number: S06-USA-00660-01

PATIENT
  Age: 72 Year
  Sex: Female

DRUGS (11)
  1. NAMENDA [Suspect]
     Indication: AMNESIA
     Dosage: 10 MG BID PO
     Route: 048
     Dates: start: 20060211
  2. NAMENDA [Suspect]
     Indication: AMNESIA
     Dosage: 5 MG QD PO
     Route: 048
     Dates: start: 20060121, end: 20060127
  3. NAMENDA [Suspect]
     Indication: AMNESIA
     Dosage: 5 MG BID PO
     Route: 048
     Dates: start: 20060128, end: 20060203
  4. NAMENDA [Suspect]
     Indication: AMNESIA
     Dosage: 15 MG QD PO
     Route: 048
     Dates: start: 20060204, end: 20060210
  5. LIPITOR [Concomitant]
  6. NEXIUM [Concomitant]
  7. GLUCOSAMINE [Concomitant]
  8. IBUPROFEN [Concomitant]
  9. WATER PILL (NOS) [Concomitant]
  10. VITAMIN E [Concomitant]
  11. MULTIVITAMIN (NOS) [Concomitant]

REACTIONS (1)
  - DIZZINESS [None]
